FAERS Safety Report 13186208 (Version 1)
Quarter: 2017Q1

REPORT INFORMATION
  Report Type: Spontaneous
  Country: GB (occurrence: GB)
  Receive Date: 20170204
  Receipt Date: 20170204
  Transmission Date: 20170428
  Serious: Yes (Other)
  Sender: FDA-Public Use
  Company Number: GB-ACCORD-047836

PATIENT
  Age: 27 Year
  Sex: Female

DRUGS (14)
  1. CHLORPHENAMINE/CHLORPHENAMINE MALEATE/CHLORPHENAMINE RESINATE/CHLORPHENAMINE TANNATE [Concomitant]
     Active Substance: CHLORPHENIRAMINE
  2. HYOSCINE [Concomitant]
     Active Substance: SCOPOLAMINE
  3. MEBEVERINE [Concomitant]
     Active Substance: MEBEVERINE
  4. CITALOPRAM [Interacting]
     Active Substance: CITALOPRAM HYDROBROMIDE
     Indication: PRODUCT USED FOR UNKNOWN INDICATION
  5. TRAMADOL/TRAMADOL HYDROCHLORIDE [Interacting]
     Active Substance: TRAMADOL HYDROCHLORIDE
     Indication: ABDOMINAL PAIN
     Route: 042
     Dates: start: 20170109, end: 20170109
  6. DICLOFENAC [Concomitant]
     Active Substance: DICLOFENAC
  7. ORAMORPH [Concomitant]
     Active Substance: MORPHINE SULFATE
  8. CYCLIZINE [Concomitant]
     Active Substance: CYCLIZINE
  9. LOPERAMIDE [Concomitant]
     Active Substance: LOPERAMIDE
  10. AMITRIPTYLINE [Suspect]
     Active Substance: AMITRIPTYLINE
     Indication: PRODUCT USED FOR UNKNOWN INDICATION
  11. OMEPRAZOLE. [Concomitant]
     Active Substance: OMEPRAZOLE
  12. PROCHLORPERAZINE. [Concomitant]
     Active Substance: PROCHLORPERAZINE
  13. CODEINE [Concomitant]
     Active Substance: CODEINE
  14. PARACETAMOL [Concomitant]
     Active Substance: ACETAMINOPHEN

REACTIONS (3)
  - Labelled drug-drug interaction medication error [Unknown]
  - Serotonin syndrome [Unknown]
  - Seizure [Recovered/Resolved]

NARRATIVE: CASE EVENT DATE: 20170109
